FAERS Safety Report 7904827-0 (Version None)
Quarter: 2011Q4

REPORT INFORMATION
  Report Type: 
  Country: None (occurrence: None)
  Receive Date: 20111109
  Receipt Date: 20111028
  Transmission Date: 20120403
  Serious: Yes (Hospitalization, Disabling)
  Sender: FDA-Public Use
  Company Number: PHHY2009SG38385

PATIENT
  Sex: Male

DRUGS (1)
  1. GLEEVEC [Suspect]
     Indication: CHRONIC MYELOID LEUKAEMIA
     Dosage: 400 MG, UNK
     Route: 048
     Dates: start: 20060413

REACTIONS (5)
  - SPINAL CORD INJURY [None]
  - ACCIDENT AT WORK [None]
  - GAIT DISTURBANCE [None]
  - ABDOMINAL PAIN UPPER [None]
  - CERVICAL MYELOPATHY [None]
